FAERS Safety Report 22161255 (Version 1)
Quarter: 2023Q1

REPORT INFORMATION
  Report Type: Spontaneous
  Country: TR (occurrence: TR)
  Receive Date: 20230331
  Receipt Date: 20230331
  Transmission Date: 20230418
  Serious: Yes (Other)
  Sender: FDA-Public Use
  Company Number: TR-PFIZER INC-PV202300056947

PATIENT
  Age: 54 Year
  Sex: Female

DRUGS (1)
  1. AZITHROMYCIN [Suspect]
     Active Substance: AZITHROMYCIN
     Indication: Influenza
     Dosage: 500 MG, 1X/DAY

REACTIONS (2)
  - Deafness transitory [Recovered/Resolved]
  - Off label use [Unknown]
